FAERS Safety Report 21267979 (Version 4)
Quarter: 2023Q1

REPORT INFORMATION
  Report Type: Spontaneous
  Country: US (occurrence: US)
  Receive Date: 20220829
  Receipt Date: 20230327
  Transmission Date: 20230417
  Serious: No
  Sender: FDA-Public Use
  Company Number: US-BIOGEN-2022BI01149327

PATIENT
  Age: 70 Year
  Sex: Male
  Weight: 78.744 kg

DRUGS (15)
  1. ADUHELM [Suspect]
     Active Substance: ADUCANUMAB-AVWA
     Indication: Dementia Alzheimer^s type
     Dosage: INFUSION 1
     Route: 050
     Dates: start: 20220323
  2. ADUHELM [Suspect]
     Active Substance: ADUCANUMAB-AVWA
     Dosage: INFUSION 2
     Route: 050
     Dates: start: 20220420
  3. ADUHELM [Suspect]
     Active Substance: ADUCANUMAB-AVWA
     Dosage: INFUSION 3
     Route: 050
     Dates: start: 20220516
  4. ADUHELM [Suspect]
     Active Substance: ADUCANUMAB-AVWA
     Dosage: INFUSION 4
     Route: 050
     Dates: start: 20220613
  5. ADUHELM [Suspect]
     Active Substance: ADUCANUMAB-AVWA
     Dosage: INFUSIONS 5
     Route: 050
     Dates: start: 20220711
  6. ADUHELM [Suspect]
     Active Substance: ADUCANUMAB-AVWA
     Dosage: INFUSIONS 6
     Route: 050
     Dates: start: 20220809
  7. ADUHELM [Suspect]
     Active Substance: ADUCANUMAB-AVWA
     Dosage: INFUSION 7
     Route: 050
     Dates: start: 20220906
  8. CITALOPRAM [Concomitant]
     Active Substance: CITALOPRAM HYDROBROMIDE
     Indication: Product used for unknown indication
     Route: 050
  9. DONEPEZIL [Concomitant]
     Active Substance: DONEPEZIL
     Indication: Product used for unknown indication
     Route: 050
  10. FLONASE [Concomitant]
     Active Substance: FLUTICASONE PROPIONATE
     Indication: Rhinorrhoea
     Dosage: 1 SPRAY BOTH NARES BID AS NEEDED
     Route: 050
  11. TREMFYA [Concomitant]
     Active Substance: GUSELKUMAB
     Indication: Product used for unknown indication
     Route: 050
  12. LISINOPRIL [Concomitant]
     Active Substance: LISINOPRIL
     Indication: Product used for unknown indication
     Route: 050
  13. MEMANTINE [Concomitant]
     Active Substance: MEMANTINE
     Indication: Product used for unknown indication
     Dosage: 90 DAYS
     Route: 050
  14. ROSUVASTATIN [Concomitant]
     Active Substance: ROSUVASTATIN
     Indication: Product used for unknown indication
     Route: 050
  15. SPIRONOLACTONE [Concomitant]
     Active Substance: SPIRONOLACTONE
     Indication: Product used for unknown indication
     Route: 050

REACTIONS (4)
  - Amyloid related imaging abnormality-oedema/effusion [Recovered/Resolved]
  - Feeling abnormal [Recovered/Resolved]
  - Amyloid related imaging abnormality-microhaemorrhages and haemosiderin deposits [Unknown]
  - Amyloid related imaging abnormality-oedema/effusion [Unknown]

NARRATIVE: CASE EVENT DATE: 20220816
